FAERS Safety Report 8921287 (Version 2)
Quarter: 2012Q4

REPORT INFORMATION
  Report Type: 
  Country: US (occurrence: US)
  Receive Date: 20121121
  Receipt Date: 20121128
  Transmission Date: 20130627
  Serious: Yes (Hospitalization)
  Sender: FDA-Public Use
  Company Number: US-ACTELION-A-NJ2012-74990

PATIENT
  Age: 69 Year
  Sex: Male

DRUGS (4)
  1. TRACLEER [Suspect]
     Indication: PULMONARY ARTERIAL HYPERTENSION
     Dosage: UNK
     Route: 048
  2. VENTAVIS [Concomitant]
     Indication: PULMONARY ARTERIAL HYPERTENSION
     Dosage: UNK
     Route: 055
  3. SILDENAFIL [Concomitant]
  4. COUMADIN [Concomitant]

REACTIONS (5)
  - Cellulitis [Recovering/Resolving]
  - Haematoma [Recovering/Resolving]
  - Incisional drainage [Recovering/Resolving]
  - Heart rate increased [Recovering/Resolving]
  - Fluid retention [Recovering/Resolving]
